FAERS Safety Report 8267451-9 (Version None)
Quarter: 2012Q2

REPORT INFORMATION
  Report Type: 
  Country: None (occurrence: None)
  Receive Date: 20120409
  Receipt Date: 20120405
  Transmission Date: 20120825
  Serious: Yes (Other)
  Sender: FDA-Public Use
  Company Number: PHHY2012DE020089

PATIENT
  Sex: Male

DRUGS (4)
  1. EXJADE [Suspect]
     Indication: REFRACTORY ANAEMIA
     Dosage: 1000 MG, UNK
     Route: 048
     Dates: start: 20111101
  2. EXJADE [Suspect]
     Indication: MYELODYSPLASTIC SYNDROME
     Dosage: 500 MG, UNK
     Route: 048
  3. DESFERAL [Concomitant]
     Dosage: 3X4G/WEEK
  4. DESFERAL [Concomitant]
     Dosage: 4X4G/WEEK

REACTIONS (4)
  - VISUAL ACUITY REDUCED [None]
  - MACULAR DEGENERATION [None]
  - VISUAL IMPAIRMENT [None]
  - CATARACT [None]
